FAERS Safety Report 9363119 (Version 1)
Quarter: 2013Q2

REPORT INFORMATION
  Report Type: Spontaneous
  Country: US (occurrence: US)
  Receive Date: 20130624
  Receipt Date: 20130624
  Transmission Date: 20140414
  Serious: No
  Sender: FDA-Public Use
  Company Number: US-009507513-1306USA004053

PATIENT
  Sex: Male

DRUGS (3)
  1. JANUVIA [Suspect]
     Indication: TYPE 2 DIABETES MELLITUS
     Dosage: 100 MG, QD
     Route: 048
  2. JANUVIA [Suspect]
     Dosage: 50 MG, QD
     Route: 048
  3. LANTUS [Concomitant]

REACTIONS (2)
  - Hypoglycaemia [Unknown]
  - Renal impairment [Unknown]
